FAERS Safety Report 7297774-1 (Version None)
Quarter: 2011Q1

REPORT INFORMATION
  Report Type: 
  Country: None (occurrence: None)
  Receive Date: 20110214
  Receipt Date: 20110214
  Transmission Date: 20110831
  Serious: Yes (Life-Threatening, Hospitalization, Other)
  Sender: FDA-Public Use
  Company Number: None

PATIENT
  Sex: Female
  Weight: 56.6996 kg

DRUGS (3)
  1. TOPITAMATE 100 MG ZYD [Suspect]
     Indication: MIGRAINE WITH AURA
     Dosage: 100 MG DAILY PO
     Route: 048
     Dates: start: 20080401, end: 20110213
  2. CITALOPRAM 40 MG LEG [Suspect]
     Indication: ANXIETY
     Dosage: 40 MG DAILY PO
     Route: 048
     Dates: start: 20100601, end: 20110210
  3. CITALOPRAM 40 MG LEG [Suspect]
     Indication: PANIC DISORDER
     Dosage: 40 MG DAILY PO
     Route: 048
     Dates: start: 20100601, end: 20110210

REACTIONS (9)
  - IMPAIRED WORK ABILITY [None]
  - MIGRAINE [None]
  - DYSPHEMIA [None]
  - AGGRESSION [None]
  - MAJOR DEPRESSION [None]
  - ANXIETY [None]
  - SUICIDAL IDEATION [None]
  - IRRITABILITY [None]
  - SPEECH DISORDER [None]
